FAERS Safety Report 14543632 (Version 4)
Quarter: 2018Q2

REPORT INFORMATION
  Report Type: Spontaneous
  Country: AU (occurrence: AU)
  Receive Date: 20180216
  Receipt Date: 20180619
  Transmission Date: 20180711
  Serious: Yes (Life-Threatening, Hospitalization)
  Sender: FDA-Public Use
  Company Number: AU-MARINA BIOTECH, INC.-2018MARINA000499

PATIENT

DRUGS (3)
  1. COVERAM [Suspect]
     Active Substance: AMLODIPINE\PERINDOPRIL
     Dosage: 1 (5MG/5MG) TABLET DAILY
     Route: 048
     Dates: start: 20161125, end: 20161128
  2. CEFALEXIN [Concomitant]
     Active Substance: CEPHALEXIN
     Indication: PROPHYLAXIS
     Dosage: 500 MG, QD
     Route: 048
     Dates: start: 2016, end: 2016
  3. COVERAM [Suspect]
     Active Substance: AMLODIPINE\PERINDOPRIL
     Indication: HYPERTENSION
     Dosage: 1 (5MG/5MG) TABLET DAILY
     Route: 048
     Dates: end: 20160822

REACTIONS (9)
  - Renal impairment [Recovering/Resolving]
  - Acute kidney injury [Recovering/Resolving]
  - Hyperkalaemia [Recovering/Resolving]
  - Hepatic function abnormal [Recovering/Resolving]
  - Acute myocardial infarction [Recovering/Resolving]
  - Drug reaction with eosinophilia and systemic symptoms [Recovered/Resolved with Sequelae]
  - Chronic kidney disease [Recovering/Resolving]
  - Pneumonia [Recovering/Resolving]
  - Rash pruritic [Recovering/Resolving]

NARRATIVE: CASE EVENT DATE: 20160822
